FAERS Safety Report 6028142-8 (Version None)
Quarter: 2009Q1

REPORT INFORMATION
  Report Type: 
  Country: None (occurrence: None)
  Receive Date: 20090106
  Receipt Date: 20081226
  Transmission Date: 20090719
  Serious: Yes (Other)
  Sender: FDA-Public Use
  Company Number: JP-SP-2008-04020

PATIENT
  Age: 63 Year
  Sex: Male

DRUGS (2)
  1. IMMUCYST [Suspect]
     Indication: BLADDER CANCER
     Route: 043
     Dates: end: 20081103
  2. IMMUCYST [Suspect]
     Route: 043
     Dates: end: 20081103

REACTIONS (7)
  - ARTHRALGIA [None]
  - ARTHRITIS [None]
  - DIARRHOEA [None]
  - DYSKINESIA [None]
  - DYSSTASIA [None]
  - MUSCULOSKELETAL PAIN [None]
  - REITER'S SYNDROME [None]
